FAERS Safety Report 16421425 (Version 4)
Quarter: 2019Q3

REPORT INFORMATION
  Report Type: Report from Study
  Country: US (occurrence: US)
  Receive Date: 20190612
  Receipt Date: 20190821
  Transmission Date: 20191004
  Serious: Yes (Other)
  Sender: FDA-Public Use
  Company Number: US-JNJFOC-20190614582

PATIENT
  Sex: Female

DRUGS (1)
  1. IMBRUVICA [Suspect]
     Active Substance: IBRUTINIB
     Indication: CHRONIC LYMPHOCYTIC LEUKAEMIA
     Route: 048
     Dates: start: 20190530

REACTIONS (8)
  - Renal function test abnormal [Unknown]
  - Glomerular filtration rate decreased [Unknown]
  - Muscle spasms [Unknown]
  - Post procedural haemorrhage [Unknown]
  - White blood cell count increased [Unknown]
  - Contusion [Unknown]
  - Cystitis [Unknown]
  - Urinary tract infection [Unknown]
